FAERS Safety Report 15494507 (Version 3)
Quarter: 2018Q4

REPORT INFORMATION
  Report Type: Report from Study
  Country: CO (occurrence: CO)
  Receive Date: 20181012
  Receipt Date: 20181128
  Transmission Date: 20190205
  Serious: Yes (Other)
  Sender: FDA-Public Use
  Company Number: CO-AMGEN-COLSL2018140600

PATIENT
  Age: 75 Year
  Sex: Female

DRUGS (2)
  1. NPLATE [Suspect]
     Active Substance: ROMIPLOSTIM
     Indication: IMMUNE THROMBOCYTOPENIC PURPURA
     Dosage: 600 MCG, QWK
     Route: 058
     Dates: start: 20150323
  2. NPLATE [Suspect]
     Active Substance: ROMIPLOSTIM
     Dosage: 300 MCG, QWK
     Route: 058

REACTIONS (5)
  - Thrombocytosis [Not Recovered/Not Resolved]
  - Bronchitis [Unknown]
  - Influenza [Not Recovered/Not Resolved]
  - Chest pain [Not Recovered/Not Resolved]
  - Thrombocytopenia [Recovered/Resolved]
